FAERS Safety Report 4924546-2 (Version None)
Quarter: 2006Q1

REPORT INFORMATION
  Report Type: 
  Country: None (occurrence: None)
  Receive Date: 20060222
  Receipt Date: 20060213
  Transmission Date: 20060701
  Serious: Yes (Death, Hospitalization)
  Sender: FDA-Public Use
  Company Number: A044-002-005899

PATIENT
  Age: 84 Year
  Sex: Female

DRUGS (9)
  1. ARICEPT [Suspect]
     Indication: DEMENTIA ALZHEIMER'S TYPE
     Dosage: SEE IMAGE
     Route: 048
     Dates: start: 20050901, end: 20050930
  2. ARICEPT [Suspect]
     Indication: DEMENTIA ALZHEIMER'S TYPE
     Dosage: SEE IMAGE
     Route: 048
     Dates: start: 20051001, end: 20051207
  3. IRBESARTAN + HYDROCHLOROTHIAZIDE [Suspect]
     Indication: HYPERTENSION
     Dosage: 300 MG, 1 IN 1 D, ORAL  FOR MORE THAN 1 YEAR
     Route: 048
     Dates: end: 20051207
  4. LERCANIDIPINE [Suspect]
     Indication: HYPERTENSION
     Dosage: 10 MG, 1 IN 1 D, ORAL  FOR MORE THAN 1 YEAR
     Route: 048
     Dates: end: 20051207
  5. SERTRALINE HCL [Suspect]
     Indication: DEPRESSION
     Dosage: 1 DOSAGE FORMS , 1 IN 1 D, ORAL FOR MORE THAN 1 YEAR
     Route: 048
     Dates: end: 20051207
  6. MEPROBAMATE ACEPROMETAZINE (MEPRONIZINE) [Suspect]
     Dosage: 2 DOSAGE FORMS, 1 IN 1 D, ORAL  FOR MORE THAN 1 YEAR
     Route: 048
     Dates: end: 20051207
  7. REPAGLINIDE [Concomitant]
  8. RILMENIDINE [Concomitant]
  9. TIAPRIDE [Concomitant]

REACTIONS (8)
  - ASTHMA [None]
  - DEPRESSED LEVEL OF CONSCIOUSNESS [None]
  - GENERAL PHYSICAL HEALTH DETERIORATION [None]
  - HEPATITIS FULMINANT [None]
  - PNEUMONIA ASPIRATION [None]
  - PROTHROMBIN TIME PROLONGED [None]
  - RENAL FAILURE ACUTE [None]
  - RESPIRATORY DISTRESS [None]
